FAERS Safety Report 4982142-5 (Version None)
Quarter: 2006Q2

REPORT INFORMATION
  Report Type: 
  Country: None (occurrence: None)
  Receive Date: 20060425
  Receipt Date: 20051019
  Transmission Date: 20061013
  Serious: Yes (Hospitalization)
  Sender: FDA-Public Use
  Company Number: US-MERCK-0510USA08299

PATIENT
  Age: 65 Year
  Sex: Male
  Weight: 73 kg

DRUGS (2)
  1. VIOXX [Suspect]
     Indication: SHOULDER PAIN
     Route: 048
     Dates: start: 20000505, end: 20021119
  2. CELEBREX [Concomitant]
     Indication: PAIN
     Route: 065
     Dates: start: 19990101, end: 20020101

REACTIONS (8)
  - BLOOD CHOLESTEROL ABNORMAL [None]
  - CORONARY ARTERY OCCLUSION [None]
  - DUODENITIS [None]
  - GASTRITIS [None]
  - HELICOBACTER INFECTION [None]
  - HIATUS HERNIA [None]
  - MYOCARDIAL INFARCTION [None]
  - OESOPHAGITIS [None]
